FAERS Safety Report 24643631 (Version 1)
Quarter: 2024Q4

REPORT INFORMATION
  Report Type: Spontaneous
  Country: US (occurrence: US)
  Receive Date: 20241120
  Receipt Date: 20241120
  Transmission Date: 20250114
  Serious: No
  Sender: SANOFI AVENTIS
  Company Number: US-SANOFI-02306676

PATIENT
  Age: 60 Year
  Sex: Male

DRUGS (1)
  1. LANTUS SOLOSTAR [Suspect]
     Active Substance: INSULIN GLARGINE
     Indication: Diabetes mellitus
     Dosage: 44 IU, BID (44 UNITS IN MORNING AND 44 UNITS AT NIGHT)
     Dates: start: 2021

REACTIONS (2)
  - Off label use [Unknown]
  - Product storage error [Unknown]

NARRATIVE: CASE EVENT DATE: 20210101
